FAERS Safety Report 8920945 (Version 1)
Quarter: 2012Q4

REPORT INFORMATION
  Report Type: 
  Country: US (occurrence: US)
  Receive Date: 20121122
  Receipt Date: 20121122
  Transmission Date: 20130627
  Serious: No
  Sender: FDA-Public Use
  Company Number: US-PFIZER INC-2012291198

PATIENT
  Age: 54 Year
  Sex: Female

DRUGS (17)
  1. EFFEXOR [Suspect]
     Indication: FATIGUE
     Dosage: 150 mg, 1x/day
     Dates: start: 201110, end: 20121031
  2. EFFEXOR [Suspect]
     Indication: DIFFICULTY SLEEPING
  3. EFFEXOR [Suspect]
     Indication: COGNITIVE DISORDER
  4. SYNTHROID [Concomitant]
     Dosage: UNK
  5. SINGULAIR [Concomitant]
     Dosage: UNK
  6. NEXIUM [Concomitant]
     Dosage: UNK
  7. BABY ASA [Concomitant]
     Dosage: UNK
  8. GLUCOSAMINE [Concomitant]
     Dosage: UNK
  9. MULTIVITAMINS [Concomitant]
     Dosage: UNK
  10. VITAMIN B12 [Concomitant]
     Dosage: UNK
  11. VITAMIN B6 [Concomitant]
     Dosage: UNK
  12. STOOL SOFTENER [Concomitant]
     Dosage: UNK
  13. MOTRIN [Concomitant]
     Dosage: UNK, PRN
  14. ALAVERT [Concomitant]
     Dosage: UNK, PRN
  15. PRO-AIR [Concomitant]
     Dosage: UNK, PRN
  16. FLOVENT [Concomitant]
     Indication: ALLERGY
     Dosage: UNK, PRN
  17. FLOVENT [Concomitant]
     Indication: ASTHMA AGGRAVATED

REACTIONS (3)
  - Off label use [Unknown]
  - Diplopia [Unknown]
  - Vertigo [Unknown]
